FAERS Safety Report 8469840 (Version 2)
Quarter: 2012Q4

REPORT INFORMATION
  Report Type: 
  Country: US (occurrence: US)
  Receive Date: 20120321
  Receipt Date: 20121207
  Transmission Date: 20130627
  Serious: Yes (Other)
  Sender: FDA-Public Use
  Company Number: US-ROCHE-1022854

PATIENT
  Sex: Female
  Weight: 58.11 kg

DRUGS (5)
  1. ACCUTANE [Suspect]
     Indication: ACNE CYSTIC
     Route: 065
     Dates: start: 1997
  2. ACCUTANE [Suspect]
     Route: 065
     Dates: start: 1998
  3. ACCUTANE [Suspect]
     Route: 065
     Dates: start: 1999
  4. ORTHO TRI CYCLEN [Concomitant]
     Indication: CONTRACEPTION
  5. TETRACYCLIN [Concomitant]
     Indication: ACNE

REACTIONS (4)
  - Inflammatory bowel disease [Unknown]
  - Herpes zoster [Unknown]
  - Irritable bowel syndrome [Unknown]
  - Emotional distress [Unknown]
